FAERS Safety Report 7420357-7 (Version None)
Quarter: 2011Q2

REPORT INFORMATION
  Report Type: 
  Country: None (occurrence: None)
  Receive Date: 20110418
  Receipt Date: 20110413
  Transmission Date: 20111010
  Serious: No
  Sender: FDA-Public Use
  Company Number: US-BIOGENIDEC-2011BI013829

PATIENT
  Age: 53 Year
  Sex: Female

DRUGS (1)
  1. AVONEX [Suspect]
     Indication: MULTIPLE SCLEROSIS
     Route: 030
     Dates: start: 20070301

REACTIONS (8)
  - DIARRHOEA [None]
  - VISUAL ACUITY REDUCED [None]
  - MIDDLE EAR EFFUSION [None]
  - MULTIPLE SCLEROSIS RELAPSE [None]
  - CHEST DISCOMFORT [None]
  - INFLUENZA LIKE ILLNESS [None]
  - SINUSITIS [None]
  - ASTHENIA [None]
